FAERS Safety Report 15240850 (Version 1)
Quarter: 2018Q3

REPORT INFORMATION
  Report Type: Spontaneous
  Country: US (occurrence: US)
  Receive Date: 20180711
  Receipt Date: 20180711
  Transmission Date: 20181010
  Serious: Yes (Hospitalization, Disabling, Other)
  Sender: FDA-Public Use
  Company Number: None

PATIENT
  Age: 36 Year
  Sex: Female
  Weight: 90 kg

DRUGS (2)
  1. ALPRAZOLAM. [Suspect]
     Active Substance: ALPRAZOLAM
     Indication: PANIC DISORDER
     Dosage: ?          QUANTITY:2 TABLET(S);?
     Route: 048
     Dates: start: 20150820
  2. ALBUTEROL RESCUE INHALER [Concomitant]

REACTIONS (4)
  - Drug withdrawal syndrome [None]
  - Seizure like phenomena [None]
  - Blood pressure increased [None]
  - Disturbance in attention [None]

NARRATIVE: CASE EVENT DATE: 20171002
